FAERS Safety Report 4811127-4 (Version None)
Quarter: 2005Q4

REPORT INFORMATION
  Report Type: 
  Country: None (occurrence: None)
  Receive Date: 20051027
  Receipt Date: 20051024
  Transmission Date: 20060501
  Serious: Yes (Other)
  Sender: FDA-Public Use
  Company Number: CA-GLAXOSMITHKLINE-A0579457A

PATIENT
  Sex: Male

DRUGS (1)
  1. PAXIL [Suspect]
     Indication: DRUG USE FOR UNKNOWN INDICATION
     Route: 048

REACTIONS (6)
  - ALCOHOL USE [None]
  - DEPRESSION [None]
  - IMPRISONMENT [None]
  - LEGAL PROBLEM [None]
  - PHYSICAL ASSAULT [None]
  - PYROMANIA [None]
